FAERS Safety Report 9080417 (Version 1)
Quarter: 2013Q1

REPORT INFORMATION
  Report Type: Report from Study
  Country: US (occurrence: US)
  Receive Date: 20130130
  Receipt Date: 20130130
  Transmission Date: 20140127
  Serious: No
  Sender: FDA-Public Use
  Company Number: US-ABBOTT-12P-163-0968234-00

PATIENT
  Age: 40 Year
  Sex: Male

DRUGS (3)
  1. HUMIRA 40 MG/0.8 ML PEN [Suspect]
     Indication: CROHN^S DISEASE
     Route: 058
     Dates: start: 201110
  2. VITAMIN B-12 [Concomitant]
     Indication: CROHN^S DISEASE
  3. VITAMIN D WITH CALTRATE [Concomitant]
     Indication: CROHN^S DISEASE

REACTIONS (4)
  - Exostosis [Recovering/Resolving]
  - Hypertension [Recovering/Resolving]
  - Joint stiffness [Recovering/Resolving]
  - Discomfort [Recovering/Resolving]
